FAERS Safety Report 7825170-4 (Version None)
Quarter: 2011Q4

REPORT INFORMATION
  Report Type: 
  Country: None (occurrence: None)
  Receive Date: 20111019
  Receipt Date: 20111012
  Transmission Date: 20120403
  Serious: Yes (Other)
  Sender: FDA-Public Use
  Company Number: JP-PFIZER INC-2011122808

PATIENT
  Age: 40 Year
  Sex: Female
  Weight: 42 kg

DRUGS (6)
  1. ZOLPIDEM [Concomitant]
     Indication: INSOMNIA
     Dosage: 5 MG, 1X/DAY
     Route: 048
     Dates: start: 20100528
  2. SUTENT [Suspect]
     Indication: METASTASES TO LYMPH NODES
  3. MUCOSTA [Concomitant]
     Indication: DYSPEPSIA
     Dosage: 100 MG, 2X/DAY
     Route: 048
     Dates: start: 20100528, end: 20110501
  4. FAMOTIDINE [Concomitant]
     Indication: DYSPEPSIA
     Dosage: 10 MG, 1X/DAY
     Route: 048
     Dates: start: 20100528, end: 20110501
  5. SUTENT [Suspect]
     Indication: RENAL CELL CARCINOMA
     Dosage: 37.5 MG, 1X/DAY
     Route: 048
     Dates: start: 20100528, end: 20110510
  6. CELECOXIB [Concomitant]
     Indication: ANALGESIC THERAPY
     Dosage: 100 MG, 2X/DAY
     Route: 048
     Dates: start: 20100528

REACTIONS (2)
  - GAMMA-GLUTAMYLTRANSFERASE INCREASED [None]
  - BLOOD ALKALINE PHOSPHATASE INCREASED [None]
